FAERS Safety Report 8894655 (Version 1)
Quarter: 2012Q4

REPORT INFORMATION
  Report Type: 
  Country: CA (occurrence: CA)
  Receive Date: 20121108
  Receipt Date: 20121108
  Transmission Date: 20130627
  Serious: Yes (Hospitalization)
  Sender: FDA-Public Use
  Company Number: CA-AMGEN-CANSP2012058429

PATIENT
  Age: 69 Year
  Sex: Male

DRUGS (5)
  1. ENBREL [Suspect]
     Indication: RHEUMATOID ARTHRITIS
     Dosage: 50 mg, qwk
     Route: 058
     Dates: start: 20091031
  2. PLAVIX [Concomitant]
     Indication: ANTIPLATELET THERAPY
     Dosage: 75 mg, bid
     Route: 048
     Dates: start: 20120518
  3. ATORVASTATIN [Concomitant]
     Indication: BLOOD CHOLESTEROL
     Dosage: 20 UNK, bid
     Route: 048
     Dates: start: 20120518
  4. ASAPHEN [Concomitant]
     Dosage: 80 UNK, bid
     Route: 048
     Dates: start: 20120511
  5. METHOTREXATE [Concomitant]
     Indication: ARTHRITIS
     Dosage: 20 UNK, qwk
     Route: 058
     Dates: start: 20050728, end: 20100319

REACTIONS (1)
  - Cerebrovascular accident [Unknown]
